FAERS Safety Report 6625180-9 (Version None)
Quarter: 2010Q1

REPORT INFORMATION
  Report Type: 
  Country: None (occurrence: None)
  Receive Date: 20100310
  Receipt Date: 20090908
  Transmission Date: 20100710
  Serious: No
  Sender: FDA-Public Use
  Company Number: US-BIOGENIDEC-2009BI028487

PATIENT
  Age: 47 Year
  Sex: Female

DRUGS (3)
  1. AVONEX [Suspect]
     Indication: MULTIPLE SCLEROSIS
     Route: 030
     Dates: start: 19990501, end: 20030101
  2. AVONEX [Suspect]
     Route: 030
     Dates: start: 20030101
  3. THYROID TAB [Concomitant]
     Indication: THYROID DISORDER
     Route: 048
     Dates: start: 19890101, end: 20090801

REACTIONS (3)
  - COGNITIVE DISORDER [None]
  - DEPRESSION [None]
  - MENOPAUSE [None]
